FAERS Safety Report 8825810 (Version 1)
Quarter: 2012Q4

REPORT INFORMATION
  Report Type: 
  Country: US (occurrence: US)
  Receive Date: 20121004
  Receipt Date: 20121004
  Transmission Date: 20130627
  Serious: No
  Sender: FDA-Public Use
  Company Number: US-VERTEX PHARMACEUTICAL INC.-2012-021290

PATIENT
  Sex: Male

DRUGS (6)
  1. INCIVEK [Suspect]
     Indication: HEPATITIS C
     Dosage: 750 mg, tid
     Dates: start: 20120724, end: 201208
  2. INCIVEK [Suspect]
     Dosage: 750 mg, tid
     Route: 048
     Dates: start: 201208
  3. RIBAVIRIN [Suspect]
     Indication: HEPATITIS C
     Dosage: 600 mg AM, 400 mg PM
     Dates: start: 20120724, end: 201208
  4. RIBAVIRIN [Suspect]
     Dosage: 600 mg AM, 400 mg PM
     Dates: start: 201208
  5. PEGASYS [Suspect]
     Indication: HEPATITIS C
     Dosage: 180 ?g, UNK
     Route: 058
     Dates: start: 20120724, end: 201208
  6. PEGASYS [Suspect]
     Dosage: 180 ?g, UNK
     Route: 058
     Dates: start: 201208

REACTIONS (1)
  - Rash [Recovered/Resolved]
